FAERS Safety Report 17492588 (Version 1)
Quarter: 2020Q1

REPORT INFORMATION
  Report Type: Report from Study
  Country: IT (occurrence: IT)
  Receive Date: 20200304
  Receipt Date: 20200304
  Transmission Date: 20200409
  Serious: Yes (Hospitalization)
  Sender: FDA-Public Use
  Company Number: IT-TEVA-2020-IT-1194361

PATIENT
  Age: 78 Year
  Sex: Female
  Weight: 60 kg

DRUGS (2)
  1. CLOTIAPINE [Suspect]
     Active Substance: CLOTHIAPINE
     Dosage: 10 GTT
     Route: 048
     Dates: start: 20191208, end: 20191208
  2. QUETIAPINA AUROBINDO 200 MG COMPRESSE RIVESTITE CON FILM [Suspect]
     Active Substance: QUETIAPINE
     Dosage: 2 DF
     Route: 048
     Dates: start: 20191208, end: 20191208

REACTIONS (3)
  - Respiratory failure [Recovered/Resolved]
  - Medication error [Recovered/Resolved]
  - Sopor [Recovered/Resolved]

NARRATIVE: CASE EVENT DATE: 20191208
